FAERS Safety Report 11691075 (Version 3)
Quarter: 2023Q2

REPORT INFORMATION
  Report Type: Spontaneous
  Country: US (occurrence: US)
  Receive Date: 20151102
  Receipt Date: 20230604
  Transmission Date: 20230721
  Serious: Yes (Hospitalization, Other)
  Sender: FDA-Public Use
  Company Number: US-TEVA-605656USA

PATIENT
  Age: 32 Year
  Sex: Male

DRUGS (1)
  1. OXYMORPHONE HYDROCHLORIDE [Suspect]
     Active Substance: OXYMORPHONE HYDROCHLORIDE
     Indication: Drug abuse
     Route: 042

REACTIONS (4)
  - Thrombotic microangiopathy [Unknown]
  - Acute kidney injury [Recovered/Resolved]
  - Drug abuse [Unknown]
  - Intentional product use issue [Unknown]
